FAERS Safety Report 4587052-3 (Version None)
Quarter: 2005Q1

REPORT INFORMATION
  Report Type: 
  Country: None (occurrence: None)
  Receive Date: 20050218
  Receipt Date: 20050128
  Transmission Date: 20050727
  Serious: Yes (Hospitalization)
  Sender: FDA-Public Use
  Company Number: PHEH2005US01397

PATIENT
  Age: 57 Year
  Sex: Male
  Weight: 103 kg

DRUGS (5)
  1. DIOVAN HCT [Suspect]
     Indication: HYPERTENSION
     Dosage: 1 DF, QD
     Route: 048
     Dates: start: 20040301
  2. BEXTRA [Concomitant]
     Dosage: 10 MG, QD
  3. FOSAMAX [Concomitant]
  4. FLOMAX [Concomitant]
     Dosage: 0.4 UNK, QD
  5. CALTRATE +D [Concomitant]
     Dosage: UNK, BID

REACTIONS (3)
  - ABDOMINAL PAIN [None]
  - COELIAC DISEASE [None]
  - ILEUS [None]
